FAERS Safety Report 25616840 (Version 1)
Quarter: 2025Q3

REPORT INFORMATION
  Report Type: Spontaneous
  Country: CA (occurrence: CA)
  Receive Date: 20250729
  Receipt Date: 20250729
  Transmission Date: 20251020
  Serious: Yes (Other)
  Sender: TEVA
  Company Number: CA-TEVA-VS-3356770

PATIENT
  Age: 47 Year
  Sex: Female

DRUGS (1)
  1. LENALIDOMIDE [Suspect]
     Active Substance: LENALIDOMIDE
     Indication: Plasma cell myeloma
     Route: 048

REACTIONS (5)
  - Eosinophil count increased [Unknown]
  - Haematocrit decreased [Unknown]
  - Human chorionic gonadotropin increased [Unknown]
  - White blood cell count decreased [Unknown]
  - Platelet count increased [Unknown]
